FAERS Safety Report 13178621 (Version 1)
Quarter: 2017Q1

REPORT INFORMATION
  Report Type: Spontaneous
  Country: US (occurrence: US)
  Receive Date: 20170202
  Receipt Date: 20170202
  Transmission Date: 20170428
  Serious: No
  Sender: FDA-Public Use
  Company Number: US-ASTRAZENECA-2017SE08749

PATIENT
  Weight: 60.8 kg

DRUGS (5)
  1. ASPIRIN. [Concomitant]
     Active Substance: ASPIRIN
  2. ZEDA [Concomitant]
  3. BRILINTA [Suspect]
     Active Substance: TICAGRELOR
     Indication: ATRIOVENTRICULAR BLOCK
     Route: 048
  4. FIBER BRIGHT [Concomitant]
  5. PROPAFENO [Concomitant]

REACTIONS (3)
  - Asthenia [Unknown]
  - Pain [Unknown]
  - Thinking abnormal [Unknown]
